FAERS Safety Report 14760442 (Version 1)
Quarter: 2018Q2

REPORT INFORMATION
  Report Type: Spontaneous
  Country: US (occurrence: US)
  Receive Date: 20180414
  Receipt Date: 20180414
  Transmission Date: 20180711
  Serious: Yes (Death, Hospitalization)
  Sender: FDA-Public Use
  Company Number: US-TEVA-2018-US-879686

PATIENT
  Age: 53 Year
  Sex: Male

DRUGS (4)
  1. DIVALPROEX DR [Concomitant]
     Active Substance: DIVALPROEX SODIUM
     Route: 065
  2. AMLODIPINE [Suspect]
     Active Substance: AMLODIPINE BESYLATE
     Dosage: INGESTED 80 TABLETS
     Route: 048
  3. RISPERIDONE. [Concomitant]
     Active Substance: RISPERIDONE
     Route: 065
  4. TRAZODONE [Concomitant]
     Active Substance: TRAZODONE HYDROCHLORIDE
     Route: 065

REACTIONS (9)
  - Brain herniation [Fatal]
  - Brain death [Fatal]
  - Cardiac arrest [Unknown]
  - Intentional overdose [Unknown]
  - Completed suicide [Unknown]
  - Acute kidney injury [Unknown]
  - Brain injury [Fatal]
  - Hypotension [Unknown]
  - Pulseless electrical activity [Unknown]
